FAERS Safety Report 6340493-6 (Version None)
Quarter: 2009Q3

REPORT INFORMATION
  Report Type: 
  Country: None (occurrence: None)
  Receive Date: 20090904
  Receipt Date: 20090825
  Transmission Date: 20100115
  Serious: Yes (Other)
  Sender: FDA-Public Use
  Company Number: JP-JNJFOC-20090706065

PATIENT
  Sex: Female
  Weight: 38 kg

DRUGS (18)
  1. DOXORUBICIN HCL [Suspect]
     Indication: OVARIAN CANCER RECURRENT
     Route: 042
  2. FERROMIA [Concomitant]
     Route: 048
  3. HALCION [Concomitant]
     Route: 048
  4. PURSENNID [Concomitant]
     Route: 048
  5. KENALOG [Concomitant]
     Route: 065
  6. DEPAKENE [Concomitant]
     Route: 048
  7. OXYCONTIN [Concomitant]
     Route: 048
  8. OXYCONTIN [Concomitant]
     Route: 048
  9. DUROTEP [Concomitant]
     Route: 062
  10. DUROTEP [Concomitant]
     Route: 062
  11. ANPEC [Concomitant]
     Route: 054
  12. ANPEC [Concomitant]
     Route: 054
  13. OXINORM [Concomitant]
     Route: 048
  14. NOVAMIN [Concomitant]
     Route: 048
  15. PYDOXAL [Concomitant]
     Route: 048
  16. UREPEARL [Concomitant]
     Indication: PROPHYLAXIS
     Route: 061
  17. ZOFRAN [Concomitant]
     Indication: PROPHYLAXIS
     Route: 048
  18. AZUNOL [Concomitant]
     Route: 002

REACTIONS (3)
  - ENTEROCOLITIS [None]
  - ILEUS [None]
  - PYREXIA [None]
